FAERS Safety Report 20007896 (Version 2)
Quarter: 2021Q4

REPORT INFORMATION
  Report Type: Spontaneous
  Country: CA (occurrence: CA)
  Receive Date: 20211028
  Receipt Date: 20211108
  Transmission Date: 20220304
  Serious: No
  Sender: FDA-Public Use
  Company Number: CA-PFIZER INC-202101401861

PATIENT
  Age: 27 Year
  Sex: Male

DRUGS (2)
  1. PRISTIQ EXTENDED-RELEASE [Suspect]
     Active Substance: DESVENLAFAXINE SUCCINATE
     Indication: Depression
     Dosage: 100 MG
  2. PRISTIQ EXTENDED-RELEASE [Suspect]
     Active Substance: DESVENLAFAXINE SUCCINATE
     Dosage: 50 MG

REACTIONS (7)
  - Weight decreased [Unknown]
  - Dizziness [Unknown]
  - Night sweats [Unknown]
  - Nightmare [Unknown]
  - Nausea [Unknown]
  - Anxiety [Unknown]
  - Impaired work ability [Unknown]
